FAERS Safety Report 5710960-4 (Version None)
Quarter: 2008Q2

REPORT INFORMATION
  Report Type: 
  Country: None (occurrence: None)
  Receive Date: 20080421
  Receipt Date: 20080409
  Transmission Date: 20081010
  Serious: Yes (Other)
  Sender: FDA-Public Use
  Company Number: PHEH2008US03697

PATIENT
  Age: 65 Year
  Sex: Female
  Weight: 53.968 kg

DRUGS (8)
  1. RECLAST [Suspect]
     Indication: OSTEOPOROSIS
     Dosage: 5 MG, ONCE
     Route: 042
     Dates: start: 20080219
  2. CALCIUM [Concomitant]
  3. DARVOCET-N [Concomitant]
  4. FOLIC ACID [Concomitant]
  5. LEXAPRO [Concomitant]
  6. LISINOPRIL AND HYDROCHLOROTHIAZIDE [Concomitant]
  7. METHOTREXATE [Concomitant]
  8. POTASSIUM CHLORIDE [Concomitant]

REACTIONS (2)
  - OSTEITIS [None]
  - TRANSPLANT REJECTION [None]
